FAERS Safety Report 4398219-1 (Version None)
Quarter: 2004Q3

REPORT INFORMATION
  Report Type: 
  Country: None (occurrence: None)
  Receive Date: 20040713
  Receipt Date: 20040629
  Transmission Date: 20050211
  Serious: Yes (Death, Life-Threatening, Hospitalization)
  Sender: FDA-Public Use
  Company Number: JP-JNJFOC-20040200337

PATIENT
  Age: 59 Year
  Sex: Male

DRUGS (22)
  1. FENTANYL [Suspect]
     Indication: CANCER PAIN
     Dosage: SEE IMAGE
     Route: 062
     Dates: start: 20040119, end: 20040121
  2. FENTANYL [Suspect]
     Indication: CANCER PAIN
     Dosage: SEE IMAGE
     Route: 062
     Dates: start: 20040122, end: 20040124
  3. FENTANYL [Suspect]
     Indication: CANCER PAIN
     Dosage: SEE IMAGE
     Route: 062
     Dates: start: 20040125, end: 20040127
  4. FENTANYL [Suspect]
     Indication: CANCER PAIN
     Dosage: SEE IMAGE
     Route: 062
     Dates: start: 20040127, end: 20040129
  5. MIDAZOLAM HCL [Suspect]
     Indication: CANCER PAIN
     Dosage: SEE IMAGE
     Route: 042
     Dates: start: 20040123, end: 20040123
  6. MIDAZOLAM HCL [Suspect]
     Indication: CANCER PAIN
     Dosage: SEE IMAGE
     Route: 042
     Dates: start: 20040123, end: 20040123
  7. MIDAZOLAM HCL [Suspect]
     Indication: CANCER PAIN
     Dosage: SEE IMAGE
     Route: 042
     Dates: start: 20040124, end: 20040124
  8. MIDAZOLAM HCL [Suspect]
     Indication: CANCER PAIN
     Dosage: SEE IMAGE
     Route: 042
     Dates: start: 20040125, end: 20040125
  9. MORPHINE HYDROCHLORIDE (MORPHINE HYDROCHLORIDE) UNKNOWN [Suspect]
     Indication: CANCER PAIN
     Dosage: SEE IMAGE
     Route: 048
     Dates: start: 20040118, end: 20040118
  10. MORPHINE HYDROCHLORIDE (MORPHINE HYDROCHLORIDE) UNKNOWN [Suspect]
     Indication: CANCER PAIN
     Dosage: SEE IMAGE
     Route: 048
     Dates: start: 20040119, end: 20040119
  11. MORPHINE HYDROCHLORIDE (MORPHINE HYDROCHLORIDE) UNKNOWN [Suspect]
     Indication: CANCER PAIN
     Dosage: SEE IMAGE
     Route: 048
     Dates: start: 20040120, end: 20040120
  12. MORPHINE HYDROCHLORIDE (MORPHINE HYDROCHLORIDE) UNKNOWN [Suspect]
     Indication: CANCER PAIN
     Dosage: SEE IMAGE
     Route: 048
     Dates: start: 20040121, end: 20040121
  13. MORPHINE HYDROCHLORIDE (MORPHINE HYDROCHLORIDE) UNKNOWN [Suspect]
     Indication: CANCER PAIN
     Dosage: SEE IMAGE
     Route: 048
     Dates: start: 20040122, end: 20040122
  14. MORPHINE HYDROCHLORIDE (MORPHINE HYDROCHLORIDE) UNKNOWN [Suspect]
     Indication: CANCER PAIN
     Dosage: SEE IMAGE
     Route: 048
     Dates: start: 20040123, end: 20040123
  15. MORPHINE HYDROCHLORIDE (MORPHINE HYDROCHLORIDE) UNKNOWN [Suspect]
     Indication: CANCER PAIN
     Dosage: SEE IMAGE
     Route: 048
     Dates: start: 20040124, end: 20040124
  16. MORPHINE HYDROCHLORIDE (MORPHINE HYDROCHLORIDE) UNKNOWN [Suspect]
     Indication: CANCER PAIN
     Dosage: SEE IMAGE
     Route: 048
     Dates: start: 20040125, end: 20040125
  17. MORPHINE HYDROCHLORIDE (MORPHINE HYDROCHLORIDE) UNKNOWN [Suspect]
     Indication: CANCER PAIN
     Dosage: SEE IMAGE
     Route: 048
     Dates: start: 20040126, end: 20040126
  18. CEFEPIME DIHYDROCHLORIDE (CEFAPIRIN) [Suspect]
  19. METHYLPREDNISOLONE SODIUM SUCCINATE [Concomitant]
  20. MORPHINE SULFATE [Concomitant]
  21. NALOXONE HYDROCHLORIDE (NALOXONE HYDROCHLORIDE) [Concomitant]
  22. ANTIBIOTIC PREPARATIONS (ANTIBIOTICS ) [Concomitant]

REACTIONS (16)
  - DEHYDRATION [None]
  - DEPRESSED LEVEL OF CONSCIOUSNESS [None]
  - DRUG INTERACTION POTENTIATION [None]
  - DYSPHAGIA [None]
  - DYSPNOEA [None]
  - HYPOVENTILATION [None]
  - INFECTION [None]
  - LUNG NEOPLASM MALIGNANT [None]
  - MALIGNANT NEOPLASM PROGRESSION [None]
  - METABOLIC ACIDOSIS [None]
  - NEUROLEPTIC MALIGNANT SYNDROME [None]
  - PAIN [None]
  - PNEUMONIA [None]
  - RESPIRATORY DEPRESSION [None]
  - RESPIRATORY FAILURE [None]
  - THERAPY NON-RESPONDER [None]
